FAERS Safety Report 8459056-1 (Version None)
Quarter: 2012Q2

REPORT INFORMATION
  Report Type: 
  Country: None (occurrence: None)
  Receive Date: 20120622
  Receipt Date: 20120618
  Transmission Date: 20120825
  Serious: Yes (Other)
  Sender: FDA-Public Use
  Company Number: DE-ROCHE-1080489

PATIENT
  Age: 74 Year
  Sex: Female

DRUGS (2)
  1. BONIVA [Suspect]
     Indication: PRODUCT USED FOR UNKNOWN INDICATION
     Dosage: 3 MG/ML PRIOR TO THE EVENT WAS ON 19/MAR/2012
     Route: 042
  2. FALITHROM [Suspect]
     Indication: PRODUCT USED FOR UNKNOWN INDICATION

REACTIONS (3)
  - PALPITATIONS [None]
  - ARRHYTHMIA [None]
  - NAUSEA [None]
